FAERS Safety Report 19818360 (Version 1)
Quarter: 2021Q3

REPORT INFORMATION
  Report Type: Spontaneous
  Country: CA (occurrence: CA)
  Receive Date: 20210911
  Receipt Date: 20210911
  Transmission Date: 20211014
  Serious: Yes (Hospitalization)
  Sender: FDA-Public Use
  Company Number: CA-TEVA-2021-CA-1949609

PATIENT
  Age: 67 Year
  Sex: Female

DRUGS (16)
  1. DOCUSATE SODIUM. [Concomitant]
     Active Substance: DOCUSATE SODIUM
  2. GABAPENTIN. [Concomitant]
     Active Substance: GABAPENTIN
  3. RUZURGI [Concomitant]
     Active Substance: AMIFAMPRIDINE
  4. SALBUTAMOL [Concomitant]
     Active Substance: ALBUTEROL
  5. SENOKOT [Concomitant]
     Active Substance: SENNOSIDES
  6. SODIUM BICARBONATE. [Concomitant]
     Active Substance: SODIUM BICARBONATE
  7. LACTULOSE SYRUP [Concomitant]
     Active Substance: LACTULOSE
  8. LANSOPRAZOLE. [Concomitant]
     Active Substance: LANSOPRAZOLE
  9. SPIRIVA RESPIMAT [Concomitant]
     Active Substance: TIOTROPIUM BROMIDE
  10. TYLENOL [Concomitant]
     Active Substance: ACETAMINOPHEN
  11. CARBOPLATIN INJECTION [Suspect]
     Active Substance: CARBOPLATIN
     Route: 065
  12. ETOPOSIDE INJECTION [Suspect]
     Active Substance: ETOPOSIDE
     Route: 065
  13. MAGIC MOUTHWASH (NYSTATIN) [Concomitant]
     Active Substance: NYSTATIN
     Route: 065
  14. HYDROMORPHONE [Concomitant]
     Active Substance: HYDROMORPHONE
  15. PANTOPRAZOLE [Concomitant]
     Active Substance: PANTOPRAZOLE
  16. COTAZYM [Concomitant]
     Active Substance: PANCRELIPASE AMYLASE\PANCRELIPASE LIPASE\PANCRELIPASE PROTEASE

REACTIONS (1)
  - Febrile neutropenia [Unknown]
